FAERS Safety Report 21672760 (Version 15)
Quarter: 2025Q2

REPORT INFORMATION
  Report Type: Report from Study
  Country: CO (occurrence: CO)
  Receive Date: 20221202
  Receipt Date: 20250509
  Transmission Date: 20250717
  Serious: No
  Sender: TAKEDA
  Company Number: CO-TAKEDA-2021TUS052125

PATIENT
  Age: 54 Year
  Sex: Female
  Weight: 67 kg

DRUGS (3)
  1. ICATIBANT [Suspect]
     Active Substance: ICATIBANT ACETATE
     Indication: Hereditary angioedema
     Dosage: UNK UNK, Q6HR
     Dates: start: 20201022
  2. ICATIBANT [Suspect]
     Active Substance: ICATIBANT ACETATE
  3. ICATIBANT [Suspect]
     Active Substance: ICATIBANT ACETATE

REACTIONS (6)
  - Vocal cord thickening [Unknown]
  - Post procedural swelling [Unknown]
  - Productive cough [Not Recovered/Not Resolved]
  - Malaise [Not Recovered/Not Resolved]
  - Stress [Recovered/Resolved]
  - Intentional product misuse [Unknown]

NARRATIVE: CASE EVENT DATE: 20210816
